FAERS Safety Report 13268622 (Version 1)
Quarter: 2017Q1

REPORT INFORMATION
  Report Type: Spontaneous
  Country: US (occurrence: US)
  Receive Date: 20170224
  Receipt Date: 20170224
  Transmission Date: 20170428
  Serious: Yes (Other)
  Sender: FDA-Public Use
  Company Number: None

PATIENT
  Age: 62 Year
  Sex: Female

DRUGS (2)
  1. UNSPECIFIED INGREDIENT [Suspect]
     Active Substance: UNSPECIFIED INGREDIENT
  2. CORGARD [Suspect]
     Active Substance: NADOLOL

REACTIONS (2)
  - Fatigue [None]
  - Heart rate decreased [None]

NARRATIVE: CASE EVENT DATE: 20170216
